FAERS Safety Report 10252282 (Version 1)
Quarter: 2014Q2

REPORT INFORMATION
  Report Type: Spontaneous
  Country: GB (occurrence: None)
  Receive Date: 20140619
  Receipt Date: 20140619
  Transmission Date: 20141212
  Serious: Yes (Other)
  Sender: FDA-Public Use
  Company Number: AUR-APL-2014-06442

PATIENT
  Age: 57 Year
  Sex: Female
  Weight: 79 kg

DRUGS (2)
  1. PERINDOPRIL 8 MG [Suspect]
     Indication: HYPERTENSION
     Route: 048
     Dates: start: 20100301, end: 20140201
  2. AMLODIPINE (AMLODIPINE) [Concomitant]

REACTIONS (2)
  - Depression [None]
  - Drug ineffective [None]
